FAERS Safety Report 4716360-8 (Version None)
Quarter: 2005Q3

REPORT INFORMATION
  Report Type: 
  Country: None (occurrence: None)
  Receive Date: 20050715
  Receipt Date: 20050715
  Transmission Date: 20060218
  Serious: Yes (Death, Hospitalization, Other)
  Sender: FDA-Public Use
  Company Number: None

PATIENT
  Age: 62 Year
  Sex: Male
  Weight: 62 kg

DRUGS (10)
  1. ZIDOVUDINE [Suspect]
     Indication: ACQUIRED IMMUNODEFICIENCY SYNDROME
     Dosage: ONE TAB TWICE DAILY
     Dates: end: 20050523
  2. ZIDOVUDINE [Suspect]
     Indication: HIV INFECTION
     Dosage: ONE TAB TWICE DAILY
     Dates: end: 20050523
  3. LAMIVUDINE [Suspect]
     Indication: ACQUIRED IMMUNODEFICIENCY SYNDROME
  4. LAMIVUDINE [Suspect]
     Indication: HIV INFECTION
  5. ADEFOVIR 10MG [Suspect]
     Indication: HEPATITIS B
     Dosage: 10 MG PO DAILY
     Route: 048
     Dates: start: 20050526
  6. LISINOPRIL AND HYDROCHLOROTHIAZIDE [Concomitant]
  7. DONEPEZIL HCL [Concomitant]
  8. SUSTIVA [Concomitant]
  9. BACTRIM DS [Concomitant]
  10. DOXAZOSIN [Concomitant]

REACTIONS (7)
  - ASPIRATION [None]
  - DIARRHOEA [None]
  - LACTIC ACIDOSIS [None]
  - NAUSEA [None]
  - PROCEDURAL COMPLICATION [None]
  - REFUSAL OF TREATMENT BY PATIENT [None]
  - VOMITING [None]
